FAERS Safety Report 13044216 (Version 1)
Quarter: 2016Q4

REPORT INFORMATION
  Report Type: Spontaneous
  Country: US (occurrence: US)
  Receive Date: 20161220
  Receipt Date: 20161220
  Transmission Date: 20170207
  Serious: Yes (Other)
  Sender: FDA-Public Use
  Company Number: US-ROCHE-1033215

PATIENT
  Age: 65 Year
  Sex: Male
  Weight: 60.38 kg

DRUGS (8)
  1. NEURONTIN [Concomitant]
     Active Substance: GABAPENTIN
  2. MIRALAX [Concomitant]
     Active Substance: POLYETHYLENE GLYCOL 3350
  3. OXYCODONE [Concomitant]
     Active Substance: OXYCODONE
  4. COLACE [Concomitant]
     Active Substance: DOCUSATE SODIUM
  5. ZELBORAF [Suspect]
     Active Substance: VEMURAFENIB
     Route: 065
     Dates: start: 20120125
  6. MOTRIN [Concomitant]
     Active Substance: IBUPROFEN
  7. MEGACE [Concomitant]
     Active Substance: MEGESTROL ACETATE
  8. ZELBORAF [Suspect]
     Active Substance: VEMURAFENIB
     Indication: MALIGNANT MELANOMA
     Route: 048
     Dates: start: 20111102, end: 20111210

REACTIONS (1)
  - Hepatotoxicity [Recovering/Resolving]

NARRATIVE: CASE EVENT DATE: 20111220
